FAERS Safety Report 21288131 (Version 1)
Quarter: 2022Q3

REPORT INFORMATION
  Report Type: Spontaneous
  Country: US (occurrence: None)
  Receive Date: 20220902
  Receipt Date: 20220902
  Transmission Date: 20221026
  Serious: Yes (Hospitalization)
  Sender: FDA-Public Use
  Company Number: None

PATIENT
  Age: 82 Year
  Sex: Male
  Weight: 69.9 kg

DRUGS (9)
  1. ABIRATERONE [Suspect]
     Active Substance: ABIRATERONE
     Indication: Prostate cancer
     Dosage: FREQUENCY : DAILY;?
     Route: 048
     Dates: start: 20220725, end: 20220822
  2. TRAMADOL [Concomitant]
     Active Substance: TRAMADOL
  3. MONTELUKAST [Concomitant]
     Active Substance: MONTELUKAST SODIUM
  4. DIPHENHYDRAMINE [Concomitant]
     Active Substance: DIPHENHYDRAMINE
  5. LISINOPRIL [Concomitant]
     Active Substance: LISINOPRIL
  6. OMEPRAZOLE [Concomitant]
     Active Substance: OMEPRAZOLE
  7. ALBUTEROL SULFATE [Concomitant]
     Active Substance: ALBUTEROL SULFATE
  8. MELOXICAM [Concomitant]
     Active Substance: MELOXICAM
  9. PREDNISONE [Concomitant]
     Active Substance: PREDNISONE

REACTIONS (2)
  - Renal failure [None]
  - Therapy interrupted [None]

NARRATIVE: CASE EVENT DATE: 20220822
